FAERS Safety Report 7906274-4 (Version None)
Quarter: 2011Q4

REPORT INFORMATION
  Report Type: 
  Country: None (occurrence: None)
  Receive Date: 20111110
  Receipt Date: 20111103
  Transmission Date: 20120403
  Serious: Yes (Death)
  Sender: FDA-Public Use
  Company Number: US-SANOFI-AVENTIS-2011SA062666

PATIENT
  Age: 80 Year
  Sex: Female
  Weight: 45.9 kg

DRUGS (7)
  1. TRAMADOL HCL [Concomitant]
     Indication: PAIN
     Dosage: ONE TABLET EVERY 6 HOURS AS NEEDED
     Route: 065
     Dates: start: 20100412, end: 20110920
  2. ARIXTRA [Concomitant]
  3. LOVENOX [Suspect]
     Indication: PULMONARY EMBOLISM
     Route: 065
     Dates: start: 20110509, end: 20110920
  4. LOVENOX [Suspect]
     Indication: DEEP VEIN THROMBOSIS
     Route: 065
     Dates: start: 20110509, end: 20110920
  5. PREDNISONE TAB [Concomitant]
     Dates: end: 20110920
  6. DEXAMETHASONE [Concomitant]
     Indication: BRAIN CANCER METASTATIC
     Dates: start: 20110708
  7. DILAUDID [Concomitant]
     Indication: PAIN
     Dosage: 1 TABLET EVERY 6 HOURS AS NEEDED
     Dates: start: 20100706, end: 20110920

REACTIONS (1)
  - NON-SMALL CELL LUNG CANCER METASTATIC [None]
